FAERS Safety Report 10871200 (Version 1)
Quarter: 2015Q1

REPORT INFORMATION
  Report Type: Spontaneous
  Country: PE (occurrence: None)
  Receive Date: 20150223
  Receipt Date: 20150223
  Transmission Date: 20150721
  Serious: Yes (Death)
  Sender: FDA-Public Use
  Company Number: COR_00253_2015

PATIENT

DRUGS (2)
  1. PEMETREXED (PEMETREXED) [Suspect]
     Active Substance: PEMETREXED
     Indication: LUNG NEOPLASM MALIGNANT
     Dosage: 1X3WEEKS, [FOUR CYCLES FOLLOWED BY MAINTENANCE THERAPY]
  2. CARBOPLATIN (CARBOPLATIN) [Suspect]
     Active Substance: CARBOPLATIN
     Indication: LUNG NEOPLASM MALIGNANT
     Dosage: AUC 5 TO 6

REACTIONS (2)
  - Sepsis [None]
  - Febrile neutropenia [None]
